FAERS Safety Report 15153402 (Version 1)
Quarter: 2018Q3

REPORT INFORMATION
  Report Type: Spontaneous
  Country: US (occurrence: US)
  Receive Date: 20180619
  Receipt Date: 20180619
  Transmission Date: 20181010
  Serious: Yes (Life-Threatening, Hospitalization, Other)
  Sender: FDA-Public Use
  Company Number: None

PATIENT
  Age: 18 Year
  Sex: Female
  Weight: 67 kg

DRUGS (2)
  1. PAXIL [Concomitant]
     Active Substance: PAROXETINE HYDROCHLORIDE
     Dates: start: 20180131, end: 20180531
  2. LATUDA [Suspect]
     Active Substance: LURASIDONE HYDROCHLORIDE
     Route: 048

REACTIONS (6)
  - Rhabdomyolysis [None]
  - Neuroleptic malignant syndrome [None]
  - Pyrexia [None]
  - Seizure [None]
  - Muscle rigidity [None]
  - Mental status changes [None]

NARRATIVE: CASE EVENT DATE: 20180531
